FAERS Safety Report 8515819-5 (Version None)
Quarter: 2012Q3

REPORT INFORMATION
  Report Type: 
  Country: None (occurrence: None)
  Receive Date: 20120717
  Receipt Date: 20120709
  Transmission Date: 20120928
  Serious: Yes (Hospitalization)
  Sender: FDA-Public Use
  Company Number: ES-NAPPMUNDI-GBR-2012-0010654

PATIENT
  Age: 63 Year
  Sex: Female

DRUGS (8)
  1. PREDNISONE TAB [Concomitant]
     Dosage: 5 MG, DAILY
  2. NALOXOLNE HCL [Suspect]
     Indication: RHEUMATOID ARTHRITIS
  3. OXYCONTIN [Suspect]
     Indication: OSTEOARTHRITIS
     Dosage: UNK
     Route: 065
  4. OXYCONTIN [Suspect]
     Indication: RHEUMATOID ARTHRITIS
  5. NALOXOLNE HCL [Suspect]
     Indication: OSTEOARTHRITIS
     Dosage: 20 MG, Q12H
     Route: 048
     Dates: start: 20120510, end: 20120511
  6. DURAGESIC-100 [Concomitant]
     Dosage: UNK UNK, Q48H
  7. ARAVA [Concomitant]
     Dosage: 20 UNK, UNK
  8. ENALAPRIL MALEATE [Concomitant]

REACTIONS (4)
  - DYSKINESIA [None]
  - MYOCLONUS [None]
  - AKATHISIA [None]
  - FEELING JITTERY [None]
